FAERS Safety Report 23775865 (Version 1)
Quarter: 2024Q2

REPORT INFORMATION
  Report Type: Spontaneous
  Country: US (occurrence: US)
  Receive Date: 20240424
  Receipt Date: 20240424
  Transmission Date: 20240716
  Serious: Yes (Other)
  Sender: FDA-Public Use
  Company Number: US-BEH-2024170655

PATIENT
  Age: 31 Year
  Sex: Female
  Weight: 108.84 kg

DRUGS (5)
  1. BERINERT [Suspect]
     Active Substance: HUMAN C1-ESTERASE INHIBITOR
     Indication: Hereditary angioedema
     Dosage: 2500 IU, PRN
     Route: 042
     Dates: start: 202404
  2. BERINERT [Suspect]
     Active Substance: HUMAN C1-ESTERASE INHIBITOR
     Indication: Hereditary angioedema
     Dosage: 2500 IU, PRN
     Route: 042
     Dates: start: 202404
  3. TAKHZYRO [Concomitant]
     Active Substance: LANADELUMAB-FLYO
  4. ICATIBANT ACETATE [Concomitant]
     Active Substance: ICATIBANT ACETATE
  5. DUPIXENT [Concomitant]
     Active Substance: DUPILUMAB

REACTIONS (4)
  - Hereditary angioedema [Unknown]
  - Hereditary angioedema [Unknown]
  - Hereditary angioedema [Unknown]
  - Weight decreased [Unknown]

NARRATIVE: CASE EVENT DATE: 20240401
